FAERS Safety Report 8271095-2 (Version None)
Quarter: 2012Q2

REPORT INFORMATION
  Report Type: 
  Country: None (occurrence: None)
  Receive Date: 20120410
  Receipt Date: 20120402
  Transmission Date: 20120825
  Serious: Yes (Other)
  Sender: FDA-Public Use
  Company Number: US-PFIZER INC-2012083142

PATIENT
  Sex: Female
  Weight: 65.76 kg

DRUGS (4)
  1. DIOVAN HCT [Concomitant]
     Indication: HYPERTENSION
     Dosage: 320/12.5MG, DAILY
     Route: 048
  2. LATANOPROST [Suspect]
     Indication: GLAUCOMA
     Dosage: 1 DROP IN EACH EYE DAILY AT NIGHT
     Route: 047
     Dates: start: 20120101
  3. PRAZOSIN [Concomitant]
     Indication: HYPERTENSION
     Dosage: UNK, 2X/DAY
  4. ATENOLOL [Concomitant]
     Indication: HYPERTENSION
     Dosage: UNK, 2X/DAY

REACTIONS (1)
  - INTRAOCULAR PRESSURE INCREASED [None]
